FAERS Safety Report 13094344 (Version 6)
Quarter: 2018Q2

REPORT INFORMATION
  Report Type: Spontaneous
  Country: US (occurrence: US)
  Receive Date: 20170106
  Receipt Date: 20180410
  Transmission Date: 20180711
  Serious: Yes (Hospitalization, Disabling)
  Sender: FDA-Public Use
  Company Number: US-PFIZER INC-2017004317

PATIENT
  Age: 87 Year
  Sex: Female
  Weight: 67.59 kg

DRUGS (3)
  1. IBRANCE [Suspect]
     Active Substance: PALBOCICLIB
     Indication: BREAST CANCER METASTATIC
     Dosage: 75 MG, CYCLIC (DAILY, 21/28)
     Route: 048
  2. IBRANCE [Suspect]
     Active Substance: PALBOCICLIB
     Dosage: 75 MG, CYCLIC (TWO WEEKS ON AND THEN TWO WEEKS OFF)
     Route: 048
     Dates: start: 2016, end: 2018
  3. IBRANCE [Suspect]
     Active Substance: PALBOCICLIB
     Dosage: 75 MG, CYCLIC (PO DAILY 2 WKS ON, 2 WKS OFF)
     Route: 048
     Dates: start: 20170830, end: 20180123

REACTIONS (6)
  - Epistaxis [Not Recovered/Not Resolved]
  - Hypertension [Unknown]
  - Cerebrovascular accident [Recovered/Resolved with Sequelae]
  - Urinary tract infection [Recovered/Resolved]
  - Sepsis [Recovered/Resolved]
  - Full blood count decreased [Recovered/Resolved]

NARRATIVE: CASE EVENT DATE: 20180119
